FAERS Safety Report 9170649 (Version 1)
Quarter: 2013Q1

REPORT INFORMATION
  Report Type: Spontaneous
  Country: US (occurrence: None)
  Receive Date: 20130308
  Receipt Date: 20130308
  Transmission Date: 20140127
  Serious: Yes (Other)
  Sender: FDA-Public Use
  Company Number: 232714-203-00001

PATIENT
  Sex: Male

DRUGS (1)
  1. FLUORIDE [Suspect]
     Dosage: 10Z SOL/4 OZ H20 3XD 047
     Dates: start: 20130115, end: 20130205

REACTIONS (3)
  - Oropharyngeal pain [None]
  - Loss of consciousness [None]
  - Hypersensitivity [None]
